FAERS Safety Report 17166762 (Version 1)
Quarter: 2019Q4

REPORT INFORMATION
  Report Type: Spontaneous
  Country: US (occurrence: US)
  Receive Date: 20191125
  Receipt Date: 20191125
  Transmission Date: 20200122
  Serious: Yes (Hospitalization)
  Sender: FDA-Public Use
  Company Number: None

PATIENT
  Age: 7 Year
  Sex: Female

DRUGS (6)
  1. PROBIOTIC [Concomitant]
     Active Substance: PROBIOTICS NOS
  2. TOPIRAMATE. [Concomitant]
     Active Substance: TOPIRAMATE
  3. OMEGA-3 ACIDS [Concomitant]
     Active Substance: OMEGA-3 FATTY ACIDS
  4. PHENOBARB [Concomitant]
     Active Substance: PHENOBARBITAL SODIUM
  5. VIMPAT [Concomitant]
     Active Substance: LACOSAMIDE
  6. VIGABATRIN. [Suspect]
     Active Substance: VIGABATRIN
     Indication: EPILEPSY
     Route: 048
     Dates: start: 20191004

REACTIONS (1)
  - Seizure [None]

NARRATIVE: CASE EVENT DATE: 20191121
